FAERS Safety Report 9121128 (Version 2)
Quarter: 2013Q1

REPORT INFORMATION
  Report Type: Spontaneous
  Country: JP (occurrence: JP)
  Receive Date: 20130226
  Receipt Date: 20130307
  Transmission Date: 20140127
  Serious: No
  Sender: FDA-Public Use
  Company Number: JP-PFIZER INC-2013065467

PATIENT
  Age: 80 Year
  Sex: Male
  Weight: 65 kg

DRUGS (6)
  1. ZYVOX [Suspect]
     Indication: STAPHYLOCOCCAL INFECTION
     Dosage: 1200 MG/DAY
     Route: 048
     Dates: start: 20121026, end: 20121106
  2. DEPAS [Concomitant]
  3. MYSLEE [Concomitant]
  4. NEUROTROPIN [Concomitant]
  5. ADJUST-A [Concomitant]
  6. SALOBEL [Concomitant]

REACTIONS (1)
  - Platelet count decreased [Recovered/Resolved]
